FAERS Safety Report 5957456-2 (Version None)
Quarter: 2008Q4

REPORT INFORMATION
  Report Type: 
  Country: None (occurrence: None)
  Receive Date: 20081114
  Receipt Date: 20081104
  Transmission Date: 20090506
  Serious: Yes (Hospitalization)
  Sender: FDA-Public Use
  Company Number: GXKR2008GB10533

PATIENT
  Age: 29 Year
  Sex: Female
  Weight: 58 kg

DRUGS (5)
  1. CEFUROXIME [Suspect]
     Indication: URINARY TRACT INFECTION
     Dosage: 1.5 G,   INTRAVENOUS
     Route: 042
     Dates: start: 20081022, end: 20081023
  2. CEFUROXIME [Suspect]
     Indication: URINARY TRACT INFECTION
     Dosage: 1.5 G,   INTRAVENOUS
     Route: 042
     Dates: end: 20081023
  3. CODEINE PHOSPHATE (CODEINE PHOSPHATE) [Concomitant]
  4. ACETAMINOPHEN [Concomitant]
  5. MEPERIDINE HCL [Concomitant]

REACTIONS (4)
  - BLOOD PRESSURE IMMEASURABLE [None]
  - FEELING HOT [None]
  - MALAISE [None]
  - UNRESPONSIVE TO STIMULI [None]
